FAERS Safety Report 6788915-0 (Version None)
Quarter: 2010Q2

REPORT INFORMATION
  Report Type: 
  Country: None (occurrence: None)
  Receive Date: 20100621
  Receipt Date: 20100416
  Transmission Date: 20101027
  Serious: Yes (Hospitalization)
  Sender: FDA-Public Use
  Company Number: UTC-001030

PATIENT
  Sex: Female
  Weight: 20.7 kg

DRUGS (12)
  1. TYVASO [Suspect]
     Indication: PULMONARY ARTERIAL HYPERTENSION
     Dosage: 72 MCG (18 MCG, 4 IN 1 D), INHALATION
     Route: 055
     Dates: start: 20100217
  2. PLAQUENIL [Concomitant]
  3. ULTRAM [Concomitant]
  4. PREDNISONE TAB [Concomitant]
  5. ZYRTEC [Concomitant]
  6. NEORAL [Concomitant]
  7. SPIRONLACTONE (SPIRONOLACTONE) [Concomitant]
  8. PREVACID [Concomitant]
  9. BACTRIM [Concomitant]
  10. KINERET [Concomitant]
  11. FERROUS SULFATE TAB [Concomitant]
  12. TUMS (CALCIUM CARBONATE) [Concomitant]

REACTIONS (1)
  - CARDIOMYOPATHY [None]
